FAERS Safety Report 9313797 (Version 1)
Quarter: 2013Q2

REPORT INFORMATION
  Report Type: Report from Study
  Country: DE (occurrence: DE)
  Receive Date: 20130529
  Receipt Date: 20130529
  Transmission Date: 20140414
  Serious: Yes (Disabling)
  Sender: FDA-Public Use
  Company Number: DE-ROCHE-1227179

PATIENT
  Sex: 0

DRUGS (8)
  1. RITUXIMAB [Suspect]
     Indication: MALIGNANT LYMPHOID NEOPLASM
     Route: 065
  2. BLEOMYCIN [Suspect]
     Indication: MALIGNANT LYMPHOID NEOPLASM
     Route: 065
  3. ETOPOSIDE [Suspect]
     Indication: MALIGNANT LYMPHOID NEOPLASM
     Route: 065
  4. ADRIAMYCIN [Suspect]
     Indication: MALIGNANT LYMPHOID NEOPLASM
     Route: 065
  5. CYCLOPHOSPHAMIDE [Suspect]
     Indication: MALIGNANT LYMPHOID NEOPLASM
     Route: 065
  6. VINCRISTINE [Suspect]
     Indication: MALIGNANT LYMPHOID NEOPLASM
     Route: 065
  7. PROCARBAZINE [Suspect]
     Indication: MALIGNANT LYMPHOID NEOPLASM
     Route: 065
  8. PREDNISONE [Suspect]
     Indication: MALIGNANT LYMPHOID NEOPLASM
     Route: 065

REACTIONS (1)
  - Osteonecrosis [Recovered/Resolved]
